FAERS Safety Report 26025822 (Version 1)
Quarter: 2025Q4

REPORT INFORMATION
  Report Type: Spontaneous
  Country: US (occurrence: None)
  Receive Date: 20251110
  Receipt Date: 20251110
  Transmission Date: 20260118
  Serious: Yes (Life-Threatening, Hospitalization, Other)
  Sender: FDA-CTU
  Company Number: None

PATIENT
  Age: 17 Year
  Sex: Female
  Weight: 94.05 kg

DRUGS (1)
  1. WEGOVY [Suspect]
     Active Substance: SEMAGLUTIDE
     Indication: Obesity
     Dates: start: 20250617, end: 20251023

REACTIONS (4)
  - Therapy change [None]
  - Depression [None]
  - Suicidal ideation [None]
  - Self-injurious ideation [None]

NARRATIVE: CASE EVENT DATE: 20251023
